FAERS Safety Report 23224019 (Version 1)
Quarter: 2023Q4

REPORT INFORMATION
  Report Type: Other
  Country: US (occurrence: None)
  Receive Date: 20231124
  Receipt Date: 20231124
  Transmission Date: 20240109
  Serious: Yes (Hospitalization)
  Sender: FDA-Public Use
  Company Number: US-ROCHE-2022655

PATIENT
  Age: 29 Year
  Sex: Female

DRUGS (13)
  1. CELLCEPT [Suspect]
     Active Substance: MYCOPHENOLATE MOFETIL
     Indication: Lupus nephritis
     Dosage: 2 TABLETS
     Route: 048
  2. CELLCEPT [Suspect]
     Active Substance: MYCOPHENOLATE MOFETIL
     Indication: Systemic lupus erythematosus
     Route: 048
     Dates: start: 2015
  3. CELLCEPT [Suspect]
     Active Substance: MYCOPHENOLATE MOFETIL
     Indication: Proteinuria
  4. CELLCEPT [Suspect]
     Active Substance: MYCOPHENOLATE MOFETIL
     Indication: Haematuria
  5. CELLCEPT [Suspect]
     Active Substance: MYCOPHENOLATE MOFETIL
     Indication: Glomerulonephropathy
  6. CELLCEPT [Suspect]
     Active Substance: MYCOPHENOLATE MOFETIL
     Indication: Glomerulonephritis membranous
  7. ACETAMINOPHEN [Concomitant]
     Active Substance: ACETAMINOPHEN
     Dosage: TYLENOL TABLET
  8. PRINIVIL [Concomitant]
     Active Substance: LISINOPRIL
  9. ZESTRIL [Concomitant]
     Active Substance: LISINOPRIL
  10. BACITRACIN [Concomitant]
     Active Substance: BACITRACIN
  11. ERGOCALCIFEROL [Concomitant]
     Active Substance: ERGOCALCIFEROL
     Dosage: VITAMIN D 50000 UNIT
  12. ZANTAC [Concomitant]
     Active Substance: RANITIDINE HYDROCHLORIDE
  13. METROGEL VAGINAL [Concomitant]
     Active Substance: METRONIDAZOLE

REACTIONS (9)
  - Pharyngitis [Unknown]
  - Off label use [Unknown]
  - Chest pain [Not Recovered/Not Resolved]
  - Eructation [Unknown]
  - Rash [Unknown]
  - Vision blurred [Unknown]
  - Arthralgia [Unknown]
  - Diarrhoea [Unknown]
  - Circumstance or information capable of leading to medication error [Unknown]
